FAERS Safety Report 8520844-4 (Version None)
Quarter: 2012Q3

REPORT INFORMATION
  Report Type: 
  Country: None (occurrence: None)
  Receive Date: 20120719
  Receipt Date: 20120717
  Transmission Date: 20120928
  Serious: Yes (Death)
  Sender: FDA-Public Use
  Company Number: AU-B.I. PHARMACEUTICALS,INC./RIDGEFIELD-2012-AU-01263AU

PATIENT
  Sex: Male

DRUGS (7)
  1. LIPIDIL [Concomitant]
  2. PRADAXA [Suspect]
     Indication: CEREBROVASCULAR ACCIDENT PROPHYLAXIS
     Dosage: 220 MG
     Dates: start: 20110718
  3. LANOXIN [Concomitant]
  4. PRADAXA [Suspect]
     Indication: ATRIAL FIBRILLATION
  5. ASPIRIN [Concomitant]
  6. DIAMICRON [Concomitant]
  7. MICARDIS [Concomitant]

REACTIONS (1)
  - AORTIC STENOSIS [None]
